FAERS Safety Report 20849077 (Version 1)
Quarter: 2022Q2

REPORT INFORMATION
  Report Type: Report from Study
  Country: TH (occurrence: TH)
  Receive Date: 20220519
  Receipt Date: 20220519
  Transmission Date: 20220721
  Serious: Yes (Death)
  Sender: FDA-Public Use
  Company Number: TH-NOVARTISPH-NVSC2020TH213967

PATIENT
  Sex: Female

DRUGS (1)
  1. KISQALI [Suspect]
     Active Substance: RIBOCICLIB
     Indication: Breast cancer metastatic
     Dosage: UNK
     Route: 048

REACTIONS (8)
  - Death [Fatal]
  - Mass [Unknown]
  - Illness [Recovering/Resolving]
  - Wound complication [Not Recovered/Not Resolved]
  - Stress [Unknown]
  - Alopecia [Unknown]
  - Vomiting [Unknown]
  - Product dose omission issue [Unknown]
